FAERS Safety Report 6250491-9 (Version None)
Quarter: 2009Q2

REPORT INFORMATION
  Report Type: 
  Country: None (occurrence: None)
  Receive Date: 20090630
  Receipt Date: 20090618
  Transmission Date: 20091009
  Serious: Yes (Hospitalization, Other)
  Sender: FDA-Public Use
  Company Number: NL-ROCHE-616502

PATIENT
  Sex: Male
  Weight: 59.4 kg

DRUGS (7)
  1. MYCOPHENOLATE MOFETIL [Suspect]
     Indication: RENAL TRANSPLANT
     Route: 065
     Dates: start: 20081112, end: 20090209
  2. RITUXIMAB [Suspect]
     Indication: RENAL TRANSPLANT
     Dosage: FREQUENCY:ONCE, FORM: INFUSION, DOSE BLINDED DATE OF LAST DOSE PRIOR TO SAE:11 NOV 2008
     Route: 042
     Dates: start: 20081111
  3. TACROLIMUS [Suspect]
     Indication: RENAL TRANSPLANT
     Route: 065
     Dates: start: 20081112
  4. PREDNISONE TAB [Suspect]
     Indication: RENAL TRANSPLANT
     Route: 065
     Dates: start: 20081111
  5. CO-TRIMOXAZOLE [Concomitant]
     Dates: start: 20081112, end: 20090216
  6. METOPROLOL SUCCINATE [Concomitant]
     Dates: start: 20081111
  7. VALGANCICLOVIR HCL [Concomitant]
     Dates: start: 20081112, end: 20090222

REACTIONS (2)
  - OESOPHAGEAL ULCER [None]
  - VIRAL INFECTION [None]
